FAERS Safety Report 8875605 (Version 1)
Quarter: 2012Q4

REPORT INFORMATION
  Report Type: Report from Study
  Country: US (occurrence: US)
  Receive Date: 20121030
  Receipt Date: 20121030
  Transmission Date: 20130627
  Serious: Yes (Other)
  Sender: FDA-Public Use
  Company Number: US-ASTELLAS-2012US010414

PATIENT
  Age: 67 Year
  Sex: Female

DRUGS (10)
  1. ERLOTINIB TABLET [Suspect]
     Indication: LUNG NEOPLASM MALIGNANT
     Dosage: 50 mg (2- 25 mg tabs), UID/QD
     Route: 048
     Dates: start: 20121015
  2. ATORVASTATIN [Concomitant]
     Indication: PRODUCT USED FOR UNKNOWN INDICATION
     Dosage: 10 mg, Unknown/D
     Route: 065
  3. DEXAMETHASON                       /00016001/ [Concomitant]
     Indication: PRODUCT USED FOR UNKNOWN INDICATION
     Dosage: 1 mg, Unknown/D
     Route: 065
  4. GLYBURIDE [Concomitant]
     Indication: PRODUCT USED FOR UNKNOWN INDICATION
     Dosage: 5 mg, Unknown/D
     Route: 065
  5. VITAMIN D /00107901/ [Concomitant]
     Indication: PRODUCT USED FOR UNKNOWN INDICATION
     Dosage: 400 DF, Unknown/D
     Route: 065
  6. ASA [Concomitant]
     Indication: PRODUCT USED FOR UNKNOWN INDICATION
     Dosage: 81 mg, Unknown/D
     Route: 065
  7. TRIAMTERENE/HCTZ [Concomitant]
     Indication: PRODUCT USED FOR UNKNOWN INDICATION
     Dosage: 37.5-25, UNK
     Route: 065
  8. PROMETHAZINE [Concomitant]
     Indication: PRODUCT USED FOR UNKNOWN INDICATION
     Dosage: 25 mg, Unknown/D
     Route: 065
  9. MIRALAX                            /00754501/ [Concomitant]
     Indication: PRODUCT USED FOR UNKNOWN INDICATION
     Dosage: 3350 NF, UNK
     Route: 065
  10. ONDANSETRON [Concomitant]
     Indication: PRODUCT USED FOR UNKNOWN INDICATION
     Dosage: 4 mg, Unknown/D
     Route: 065

REACTIONS (2)
  - Incorrect dose administered [Unknown]
  - Blood glucose increased [Recovered/Resolved]
